FAERS Safety Report 21141310 (Version 1)
Quarter: 2022Q3

REPORT INFORMATION
  Report Type: Report from Study
  Country: US (occurrence: US)
  Receive Date: 20220728
  Receipt Date: 20220728
  Transmission Date: 20221027
  Serious: Yes (Other)
  Sender: FDA-Public Use
  Company Number: US-MYLANLABS-2022M1080895

PATIENT
  Sex: Male
  Weight: 72.57 kg

DRUGS (2)
  1. YUPELRI [Suspect]
     Active Substance: REVEFENACIN
     Indication: Chronic obstructive pulmonary disease
     Dosage: QD (175MCG /3ML ONCE DAILY)
     Dates: start: 20211112, end: 20220722
  2. COGENTIN [Concomitant]
     Active Substance: BENZTROPINE MESYLATE
     Indication: Benign prostatic hyperplasia
     Dosage: UNK
     Route: 065

REACTIONS (2)
  - Urinary retention [Not Recovered/Not Resolved]
  - Treatment noncompliance [Unknown]
